FAERS Safety Report 9840882 (Version 2)
Quarter: 2014Q1

REPORT INFORMATION
  Report Type: Spontaneous
  Country: US (occurrence: US)
  Receive Date: 20140124
  Receipt Date: 20140124
  Transmission Date: 20141002
  Serious: Yes (Other)
  Sender: FDA-Public Use
  Company Number: US-RB-062259-14

PATIENT
  Age: 77 Year
  Sex: Female

DRUGS (3)
  1. MUCINEX FAST-MAX SEVERE CONGESTION AND COUGH [Suspect]
     Indication: NASOPHARYNGITIS
     Dosage: DRANK ABOUT SIX DOSES; AMOUNT USED: 3/4 OF THE BOTTLE
     Route: 048
     Dates: start: 20140107
  2. MUCINEX FAST-MAX SEVERE CONGESTION AND COUGH [Suspect]
     Indication: RESPIRATORY TRACT CONGESTION
     Dosage: DRANK ABOUT SIX DOSES; AMOUNT USED: 3/4 OF THE BOTTLE
     Route: 048
     Dates: start: 20140107
  3. ATENOLOL [Concomitant]
     Indication: BLOOD PRESSURE
     Dosage: 2 EXTRA

REACTIONS (9)
  - Blindness transient [Recovering/Resolving]
  - Heart rate decreased [Recovering/Resolving]
  - Intentional overdose [Recovering/Resolving]
  - Off label use [Recovering/Resolving]
  - Drug ineffective [Not Recovered/Not Resolved]
  - Blood pressure increased [Recovering/Resolving]
  - Headache [Recovering/Resolving]
  - Vomiting [Recovering/Resolving]
  - Nausea [Recovering/Resolving]
